FAERS Safety Report 7751755-X (Version None)
Quarter: 2011Q3

REPORT INFORMATION
  Report Type: 
  Country: None (occurrence: None)
  Receive Date: 20110915
  Receipt Date: 20110906
  Transmission Date: 20111222
  Serious: No
  Sender: FDA-Public Use
  Company Number: US-BIOGENIDEC-2011BI034372

PATIENT
  Age: 47 Year
  Sex: Male

DRUGS (2)
  1. AVONEX [Suspect]
     Indication: MULTIPLE SCLEROSIS
     Route: 030
     Dates: start: 20010911
  2. AVONEX [Suspect]
     Route: 030
     Dates: end: 20110505

REACTIONS (8)
  - MUSCLE SPASMS [None]
  - HALLUCINATION [None]
  - VISION BLURRED [None]
  - CONSTIPATION [None]
  - OEDEMA PERIPHERAL [None]
  - INJECTION SITE HAEMATOMA [None]
  - INSOMNIA [None]
  - CHEST PAIN [None]
